FAERS Safety Report 20533001 (Version 4)
Quarter: 2022Q2

REPORT INFORMATION
  Report Type: Report from Study
  Country: US (occurrence: US)
  Receive Date: 20220301
  Receipt Date: 20220615
  Transmission Date: 20220720
  Serious: Yes (Hospitalization, Other)
  Sender: FDA-Public Use
  Company Number: US-TAKEDA-2022TUS013232

PATIENT
  Sex: Female

DRUGS (1)
  1. MOBOCERTINIB [Suspect]
     Active Substance: MOBOCERTINIB
     Indication: Lung neoplasm malignant
     Dosage: 160 MILLIGRAM, QD
     Route: 065
     Dates: start: 20220125, end: 20220221

REACTIONS (5)
  - Primary progressive aphasia [Unknown]
  - Speech disorder [Unknown]
  - Acute kidney injury [Unknown]
  - Blood creatinine abnormal [Unknown]
  - Diarrhoea [Unknown]
